FAERS Safety Report 8393844-5 (Version None)
Quarter: 2012Q2

REPORT INFORMATION
  Report Type: 
  Country: None (occurrence: None)
  Receive Date: 20120530
  Receipt Date: 20120525
  Transmission Date: 20120825
  Serious: No
  Sender: FDA-Public Use
  Company Number: US-PFIZER INC-2012089227

PATIENT
  Sex: Female

DRUGS (7)
  1. COMPAZINE [Suspect]
     Dosage: UNK
  2. REGLAN [Suspect]
     Dosage: UNK
  3. BENADRYL [Suspect]
     Dosage: UNK
  4. MORPHINE [Suspect]
     Dosage: UNK
  5. HALDOL [Suspect]
     Dosage: UNK
  6. TORADOL [Suspect]
     Dosage: UNK
  7. ZANTAC [Suspect]
     Dosage: UNK

REACTIONS (1)
  - DRUG HYPERSENSITIVITY [None]
